FAERS Safety Report 7935630-3 (Version None)
Quarter: 2011Q4

REPORT INFORMATION
  Report Type: 
  Country: None (occurrence: None)
  Receive Date: 20111123
  Receipt Date: 20111110
  Transmission Date: 20120403
  Serious: Yes (Hospitalization)
  Sender: FDA-Public Use
  Company Number: CO-ELI_LILLY_AND_COMPANY-CO201111003750

PATIENT
  Age: 81 Year
  Sex: Male

DRUGS (9)
  1. BYETTA [Suspect]
     Dosage: 20 UG, QD
     Dates: start: 20110928
  2. LOSARTAN POTASSIUM [Concomitant]
     Dosage: 100 MG, QD
  3. ALLOPURINOL [Concomitant]
     Dosage: 100 MG, QD
  4. BYETTA [Suspect]
     Indication: TYPE 2 DIABETES MELLITUS
     Dosage: 10 UG, QD
     Dates: start: 20110901
  5. INSULIN NPH                        /01223208/ [Concomitant]
     Dosage: 10 IU, EACH MORNING
  6. ASPIRIN [Concomitant]
     Dosage: 100 MG, QD
  7. METFORMIN HCL [Concomitant]
     Dosage: 850 MG, QD
  8. GEMFIBROZIL [Concomitant]
     Dosage: 1200 MG, QD
  9. FUROSEMIDE [Concomitant]
     Dosage: 40 MG, QD

REACTIONS (10)
  - GASTROINTESTINAL DISORDER [None]
  - JAUNDICE [None]
  - HEPATITIS TOXIC [None]
  - HYPERBILIRUBINAEMIA [None]
  - PYREXIA [None]
  - HAEMATURIA [None]
  - HYPERTRANSAMINASAEMIA [None]
  - ASTHENIA [None]
  - DISCOMFORT [None]
  - DECREASED APPETITE [None]
